FAERS Safety Report 10165171 (Version 1)
Quarter: 2014Q2

REPORT INFORMATION
  Report Type: Spontaneous
  Country: US (occurrence: US)
  Receive Date: 20140510
  Receipt Date: 20140510
  Transmission Date: 20141212
  Serious: No
  Sender: FDA-Public Use
  Company Number: US-BRISTOL-MYERS SQUIBB COMPANY-19732122

PATIENT
  Age: 33 Year
  Sex: Female
  Weight: 83.9 kg

DRUGS (2)
  1. BYDUREON  2MG SUSPENSION [Suspect]
     Indication: INSULIN RESISTANCE
     Route: 058
     Dates: start: 20130813, end: 20131022
  2. LEVOTHYROXINE [Concomitant]

REACTIONS (7)
  - Vertigo [Unknown]
  - Chest discomfort [Unknown]
  - Blood glucose decreased [Unknown]
  - Nausea [Unknown]
  - Hypoaesthesia [Unknown]
  - Dyspnoea [Unknown]
  - Palpitations [Unknown]
